FAERS Safety Report 6811052-3 (Version None)
Quarter: 2010Q2

REPORT INFORMATION
  Report Type: 
  Country: None (occurrence: None)
  Receive Date: 20100630
  Receipt Date: 20090128
  Transmission Date: 20101027
  Serious: No
  Sender: FDA-Public Use
  Company Number: US-PFIZER INC-2009162561

PATIENT
  Sex: Female
  Weight: 54.4 kg

DRUGS (1)
  1. ESTRING [Suspect]
     Indication: VULVOVAGINAL DRYNESS
     Dates: start: 20081001, end: 20090101

REACTIONS (1)
  - BACK PAIN [None]
